FAERS Safety Report 23051317 (Version 1)
Quarter: 2023Q4

REPORT INFORMATION
  Report Type: Spontaneous
  Country: US (occurrence: None)
  Receive Date: 20231009
  Receipt Date: 20231009
  Transmission Date: 20240110
  Serious: Yes (unspecified)
  Sender: FDA-Public Use
  Company Number: None

PATIENT
  Age: 77 Year
  Sex: Female
  Weight: 70 kg

DRUGS (1)
  1. OZEMPIC [Suspect]
     Active Substance: SEMAGLUTIDE
     Indication: Type 2 diabetes mellitus
     Dosage: OTHER FREQUENCY : ONCE A WEEK;?
     Route: 058
     Dates: start: 20230303, end: 20230725

REACTIONS (4)
  - Urinary tract infection [None]
  - Asthenia [None]
  - Decreased appetite [None]
  - Fatigue [None]

NARRATIVE: CASE EVENT DATE: 20230725
